FAERS Safety Report 16084673 (Version 1)
Quarter: 2019Q1

REPORT INFORMATION
  Report Type: Spontaneous
  Country: US (occurrence: US)
  Receive Date: 20190318
  Receipt Date: 20190318
  Transmission Date: 20190418
  Serious: Yes (Other)
  Sender: FDA-Public Use
  Company Number: US-SANIK-2019SA040352AA

PATIENT
  Age: 78 Year
  Sex: Male

DRUGS (8)
  1. PLAVIX [Suspect]
     Active Substance: CLOPIDOGREL BISULFATE
     Indication: CEREBROVASCULAR ACCIDENT
     Dosage: 75 MG, QD
     Route: 048
     Dates: start: 20190121
  2. INSULIN [Concomitant]
     Active Substance: INSULIN NOS
  3. LANTUS [Concomitant]
     Active Substance: INSULIN GLARGINE
  4. HUMALOG [Concomitant]
     Active Substance: INSULIN LISPRO
  5. ASPIRIN [ACETYLSALICYLIC ACID] [Concomitant]
     Active Substance: ASPIRIN
     Dosage: 81 MG, QD
  6. HYDROCODONE [Concomitant]
     Active Substance: HYDROCODONE
  7. ATENOLOL. [Concomitant]
     Active Substance: ATENOLOL
  8. FUROSEMIDE. [Concomitant]
     Active Substance: FUROSEMIDE

REACTIONS (2)
  - Plasma cell myeloma [Unknown]
  - Back pain [Unknown]

NARRATIVE: CASE EVENT DATE: 20190123
